FAERS Safety Report 6170997-0 (Version None)
Quarter: 2009Q2

REPORT INFORMATION
  Report Type: 
  Country: None (occurrence: None)
  Receive Date: 20090429
  Receipt Date: 20090313
  Transmission Date: 20091009
  Serious: No
  Sender: FDA-Public Use
  Company Number: A0773051A

PATIENT
  Age: 9 Year
  Sex: Male

DRUGS (3)
  1. FLOVENT [Suspect]
     Indication: ASTHMA
     Dosage: 1PUFF TWICE PER DAY
     Route: 055
     Dates: start: 20090209, end: 20090309
  2. CLARITIN [Concomitant]
  3. VITAMIN [Concomitant]

REACTIONS (2)
  - ASTHENOPIA [None]
  - STRABISMUS [None]
